FAERS Safety Report 4971879-X (Version None)
Quarter: 2006Q2

REPORT INFORMATION
  Report Type: 
  Country: None (occurrence: None)
  Receive Date: 20060412
  Receipt Date: 20060412
  Transmission Date: 20061013
  Serious: Yes (Hospitalization)
  Sender: FDA-Public Use
  Company Number: None

PATIENT
  Age: 65 Year
  Sex: Male
  Weight: 55 kg

DRUGS (4)
  1. ERBITUX [Suspect]
     Indication: LARYNGEAL CANCER
     Dosage: 250MG  ONCE/WEEK  IV DRIP
     Route: 041
  2. CARBOPLATIN [Concomitant]
  3. PACLITAXEL [Concomitant]
  4. RADIATION THERAPY [Concomitant]

REACTIONS (4)
  - BLOOD PRESSURE DIASTOLIC DECREASED [None]
  - DYSKINESIA [None]
  - MENTAL STATUS CHANGES [None]
  - STARING [None]
